FAERS Safety Report 7631945-7 (Version None)
Quarter: 2011Q3

REPORT INFORMATION
  Report Type: 
  Country: None (occurrence: None)
  Receive Date: 20110725
  Receipt Date: 20110516
  Transmission Date: 20111222
  Serious: Yes (Life-Threatening, Hospitalization, Other)
  Sender: FDA-Public Use
  Company Number: US-BRISTOL-MYERS SQUIBB COMPANY-15747124

PATIENT
  Sex: Male

DRUGS (2)
  1. COUMADIN [Suspect]
     Dosage: HAD 5 TRANSFUSIONS
  2. ZOCOR [Concomitant]

REACTIONS (3)
  - HAEMORRHAGE [None]
  - PULMONARY HAEMORRHAGE [None]
  - CONTUSION [None]
